FAERS Safety Report 9528456 (Version 1)
Quarter: 2013Q3

REPORT INFORMATION
  Report Type: Spontaneous
  Country: OM (occurrence: None)
  Receive Date: 20130913
  Receipt Date: 20130913
  Transmission Date: 20140515
  Serious: Yes (Life-Threatening)
  Sender: FDA-Public Use
  Company Number: FK201304172

PATIENT
  Age: 66 Year
  Sex: Female

DRUGS (7)
  1. FUROSEMIDE (MANUFACTURER UNKNOWN) (FUROSEMIDE) (FUROSEMIDE) [Suspect]
     Indication: CARDIAC FAILURE
     Dosage: 40 MG, TWICE DAILY, UNKNOWN
  2. DIGOXIN (DIGOXIN) [Suspect]
     Indication: CARDIAC FAILURE
     Dosage: .125 MG, ONCE DAILY, UNKNOWN
  3. CARVEDILOL (CARVEDILOL) [Concomitant]
  4. LISINOPRIL (LISINOPRIL) [Concomitant]
  5. METFORMIN (METFORMIN) [Concomitant]
  6. SPIRONOLACTONE [Suspect]
     Indication: CARDIAC FAILURE
     Dosage: 25 MG, ONCE DAILY, UNKNOWN
  7. CALCIUM (CALCIUM) [Concomitant]

REACTIONS (4)
  - Drug interaction [None]
  - Hypomagnesaemia [None]
  - Supraventricular tachycardia [None]
  - Atrial tachycardia [None]
